FAERS Safety Report 19902070 (Version 1)
Quarter: 2021Q3

REPORT INFORMATION
  Report Type: Spontaneous
  Country: ES (occurrence: ES)
  Receive Date: 20210930
  Receipt Date: 20210930
  Transmission Date: 20211014
  Serious: Yes (Hospitalization)
  Sender: FDA-Public Use
  Company Number: ES-TEVA-2021-ES-1957968

PATIENT
  Age: 58 Year
  Sex: Female

DRUGS (2)
  1. LORMETAZEPAM (88A) [Interacting]
     Active Substance: LORMETAZEPAM
     Route: 048
     Dates: start: 20210718, end: 20210718
  2. OLANZAPINA (2770A) [Suspect]
     Active Substance: OLANZAPINE
     Route: 048
     Dates: start: 20210718, end: 20210718

REACTIONS (3)
  - Drug interaction [Unknown]
  - Medication error [Recovered/Resolved]
  - Depressed level of consciousness [Recovered/Resolved]

NARRATIVE: CASE EVENT DATE: 20210718
